FAERS Safety Report 6955276-3 (Version None)
Quarter: 2010Q3

REPORT INFORMATION
  Report Type: 
  Country: None (occurrence: None)
  Receive Date: 20100830
  Receipt Date: 20100817
  Transmission Date: 20110219
  Serious: Yes (Other)
  Sender: FDA-Public Use
  Company Number: PHEH2007US14923

PATIENT
  Sex: Female

DRUGS (3)
  1. ZELNORM [Suspect]
     Indication: IRRITABLE BOWEL SYNDROME
     Dosage: 2 MG, QD
     Route: 048
     Dates: start: 20030101, end: 20080901
  2. NEXIUM [Concomitant]
  3. PHENERGAN [Concomitant]

REACTIONS (10)
  - ABDOMINAL PAIN UPPER [None]
  - ACTIVITIES OF DAILY LIVING IMPAIRED [None]
  - CARDIAC DISORDER [None]
  - CHEST PAIN [None]
  - CONSTIPATION [None]
  - DYSPNOEA [None]
  - GAIT DISTURBANCE [None]
  - HYPERTENSION [None]
  - PAIN [None]
  - RESPIRATORY DISORDER [None]
